FAERS Safety Report 9255127 (Version 1)
Quarter: 2013Q2

REPORT INFORMATION
  Report Type: Spontaneous
  Country: US (occurrence: US)
  Receive Date: 20130425
  Receipt Date: 20130425
  Transmission Date: 20140414
  Serious: Yes (Other)
  Sender: FDA-Public Use
  Company Number: US-JNJFOC-20130408314

PATIENT
  Age: 51 Year
  Sex: Female
  Weight: 56 kg

DRUGS (14)
  1. ACETAMINOPHEN [Suspect]
     Indication: BACK PAIN
     Route: 048
     Dates: start: 20130218
  2. ACETAMINOPHEN [Suspect]
     Indication: BACK PAIN
     Route: 048
     Dates: start: 20130220
  3. ACETAMINOPHEN [Suspect]
     Indication: BACK PAIN
     Route: 048
     Dates: start: 2013
  4. ACETAMINOPHEN [Suspect]
     Indication: BACK PAIN
     Dosage: 500 MG AS NEEDED (FREQUENCY NOT REPORTED)
     Route: 048
     Dates: start: 2004
  5. NICOTINE [Suspect]
     Route: 061
  6. NICOTINE [Suspect]
     Indication: SMOKING CESSATION THERAPY
     Route: 061
     Dates: start: 20120815, end: 20121029
  7. VARENICLINE [Suspect]
     Indication: SMOKING CESSATION THERAPY
     Route: 048
     Dates: start: 20120808, end: 20121029
  8. BUPROPION [Suspect]
     Indication: SMOKING CESSATION THERAPY
     Route: 048
     Dates: start: 20120808, end: 20121029
  9. PLACEBO [Suspect]
     Indication: SMOKING CESSATION THERAPY
     Route: 048
     Dates: start: 20120808, end: 20121029
  10. ETHYL ALCOHOL [Suspect]
     Indication: PRODUCT USED FOR UNKNOWN INDICATION
     Route: 048
  11. GOODYS [Concomitant]
     Indication: INTERVERTEBRAL DISC DEGENERATION
     Dosage: ACETYLSALICYLIC ACID/CAFFEINE/PARACETAMOL
     Route: 048
     Dates: start: 20130218
  12. GOODYS [Concomitant]
     Indication: BACK PAIN
     Dosage: ACETYLSALICYLIC ACID/CAFFEINE/PARACETAMOL
     Route: 048
     Dates: start: 20130218
  13. IRON [Concomitant]
     Indication: MEDICAL DIET
     Route: 065
     Dates: start: 201205
  14. MULTIVITAMINS [Concomitant]
     Indication: MEDICAL DIET
     Dates: start: 201205

REACTIONS (1)
  - Hepatitis alcoholic [Not Recovered/Not Resolved]
